FAERS Safety Report 5769715-7 (Version None)
Quarter: 2008Q2

REPORT INFORMATION
  Report Type: 
  Country: None (occurrence: None)
  Receive Date: 20080612
  Receipt Date: 20080406
  Transmission Date: 20081010
  Serious: No
  Sender: FDA-Public Use
  Company Number: US-ABBOTT-08P-163-0445729-00

PATIENT
  Sex: Female
  Weight: 90.8 kg

DRUGS (6)
  1. HUMIRA [Suspect]
     Indication: RHEUMATOID ARTHRITIS
     Route: 058
     Dates: start: 20080405, end: 20080405
  2. OXYCODONE HCL [Concomitant]
     Indication: PAIN
     Route: 048
  3. OMEPRAZOLE [Concomitant]
     Indication: GASTRIC DISORDER
     Route: 048
  4. RANITIDINE [Concomitant]
     Indication: GASTRIC DISORDER
     Route: 048
  5. SERAQUEL [Concomitant]
     Indication: MENTAL DISORDER
     Route: 048
  6. ESCITALOPRAM OXALATE [Concomitant]
     Indication: MENTAL DISORDER
     Route: 048

REACTIONS (1)
  - OEDEMA PERIPHERAL [None]
